FAERS Safety Report 6233149-1 (Version None)
Quarter: 2009Q2

REPORT INFORMATION
  Report Type: 
  Country: None (occurrence: None)
  Receive Date: 20090612
  Receipt Date: 20090601
  Transmission Date: 20091009
  Serious: Yes (Death)
  Sender: FDA-Public Use
  Company Number: 231189K09USA

PATIENT
  Age: 47 Year
  Sex: Female

DRUGS (1)
  1. REBIF [Suspect]
     Dosage: 22 MCG
     Dates: start: 20081125, end: 20081221

REACTIONS (4)
  - BLOOD URINE PRESENT [None]
  - CONFUSIONAL STATE [None]
  - DYSSTASIA [None]
  - SPEECH DISORDER [None]
